FAERS Safety Report 6376284-X (Version None)
Quarter: 2009Q3

REPORT INFORMATION
  Report Type: 
  Country: None (occurrence: None)
  Receive Date: 20090925
  Receipt Date: 20090915
  Transmission Date: 20100115
  Serious: Yes (Hospitalization, Other)
  Sender: FDA-Public Use
  Company Number: US-BIOGENIDEC-2009BI029912

PATIENT
  Age: 56 Year
  Sex: Male

DRUGS (2)
  1. AVONEX [Suspect]
     Indication: MULTIPLE SCLEROSIS
     Route: 030
     Dates: start: 20010109, end: 20060301
  2. IMURAN [Concomitant]

REACTIONS (7)
  - CALCULUS URINARY [None]
  - CHOLELITHIASIS [None]
  - DIABETES MELLITUS [None]
  - DYSPNOEA [None]
  - PANCREATITIS [None]
  - PNEUMONIA [None]
  - SPEECH DISORDER [None]
